FAERS Safety Report 25870808 (Version 1)
Quarter: 2025Q4

REPORT INFORMATION
  Report Type: Report from Study
  Country: None (occurrence: EU)
  Receive Date: 20251001
  Receipt Date: 20251001
  Transmission Date: 20260117
  Serious: Yes (Hospitalization)
  Sender: ALNYLAM PHARMACEUTICALS
  Company Number: EU-ALNYLAM PHARMACEUTICALS, INC.-ALN-2025-005971

PATIENT
  Age: 61 Year
  Weight: 74.2 kg

DRUGS (2)
  1. ONPATTRO [Suspect]
     Active Substance: PATISIRAN SODIUM
     Indication: Product used for unknown indication
     Dosage: 21.6, Q3W
  2. VITAMIN D [Concomitant]
     Active Substance: VITAMIN D NOS
     Indication: Amyloidosis
     Dosage: 2500 INTERNATIONAL UNIT, QD

REACTIONS (3)
  - Fall [Recovering/Resolving]
  - Eyelid injury [Recovering/Resolving]
  - Tooth dislocation [Recovering/Resolving]
